FAERS Safety Report 9063129 (Version 8)
Quarter: 2013Q3

REPORT INFORMATION
  Report Type: Report from Study
  Country: US (occurrence: US)
  Receive Date: 20130213
  Receipt Date: 20130705
  Transmission Date: 20140515
  Serious: Yes (Death, Life-Threatening, Hospitalization, Disabling)
  Sender: FDA-Public Use
  Company Number: US-JNJFOC-20130205373

PATIENT
  Age: 17 Year
  Sex: Female
  Weight: 42.4 kg

DRUGS (19)
  1. REMICADE [Suspect]
     Indication: INFLAMMATORY BOWEL DISEASE
     Route: 042
     Dates: start: 20041224, end: 2011
  2. TOTAL PARENTERAL NUTRITION [Suspect]
     Indication: NUTRITIONAL SUPPLEMENTATION
     Route: 065
  3. HUMIRA [Concomitant]
     Route: 065
     Dates: start: 20080906
  4. AMITRIPTYLINE [Concomitant]
     Route: 065
  5. DILAUDID [Concomitant]
     Route: 065
  6. AMOXICILLIN [Concomitant]
     Route: 065
  7. OXYCODONE [Concomitant]
     Route: 065
  8. ERTAPENEM [Concomitant]
     Route: 065
  9. MEROPENEM [Concomitant]
     Route: 065
  10. FERROUS SULFATE [Concomitant]
     Route: 065
  11. METRONIDAZOLE [Concomitant]
     Route: 065
  12. DIPHENHYDRAMINE [Concomitant]
     Route: 065
  13. CLOTRIMAZOLE [Concomitant]
     Route: 065
  14. LOPERAMIDE [Concomitant]
     Route: 065
  15. OCTREOTIDE [Concomitant]
     Route: 065
  16. IRON [Concomitant]
     Route: 065
  17. FENTANYL [Concomitant]
     Route: 065
  18. CIPROFLOXACIN [Concomitant]
     Route: 065
  19. PROBIOTICS [Concomitant]
     Route: 065

REACTIONS (5)
  - Brain oedema [Fatal]
  - Coagulopathy [Fatal]
  - Sepsis [Fatal]
  - Respiratory failure [Fatal]
  - Pneumonia [Fatal]
